FAERS Safety Report 13314609 (Version 1)
Quarter: 2017Q1

REPORT INFORMATION
  Report Type: Spontaneous
  Country: SI (occurrence: SI)
  Receive Date: 20170309
  Receipt Date: 20170309
  Transmission Date: 20170428
  Serious: Yes (Other)
  Sender: FDA-Public Use
  Company Number: SI-BAYER-2017-024403

PATIENT
  Age: 32 Year
  Sex: Female

DRUGS (1)
  1. STIVARGA [Suspect]
     Active Substance: REGORAFENIB
     Indication: COLORECTAL CANCER METASTATIC
     Dosage: DAILY DOSE 120 MG
     Dates: start: 20151119, end: 201601

REACTIONS (17)
  - Carcinoembryonic antigen increased [None]
  - Carbohydrate antigen 19-9 increased [None]
  - Mouth ulceration [None]
  - Back pain [None]
  - Metastases to liver [None]
  - Alanine aminotransferase increased [None]
  - Pleural effusion [None]
  - Metastases to lung [None]
  - Metastases to lymph nodes [None]
  - Blood lactate dehydrogenase increased [None]
  - Metastases to spleen [None]
  - Ascites [None]
  - Hypertension [None]
  - Palmar-plantar erythrodysaesthesia syndrome [None]
  - Hyperkeratosis [None]
  - Decreased appetite [None]
  - Aspartate aminotransferase increased [None]

NARRATIVE: CASE EVENT DATE: 201511
